FAERS Safety Report 10208560 (Version 2)
Quarter: 2015Q3

REPORT INFORMATION
  Report Type: Report from Study
  Country: FR (occurrence: FR)
  Receive Date: 20140530
  Receipt Date: 20150709
  Transmission Date: 20151125
  Serious: Yes (Hospitalization)
  Sender: FDA-Public Use
  Company Number: FR-JNJFOC-20140510300

PATIENT
  Age: 77 Year
  Sex: Male
  Weight: 105 kg

DRUGS (8)
  1. PREDNISONE. [Concomitant]
     Active Substance: PREDNISONE
     Indication: PROSTATE CANCER METASTATIC
     Route: 048
     Dates: start: 20140304, end: 20140430
  2. EBASTINE [Concomitant]
     Active Substance: EBASTINE
     Route: 065
  3. STRUCTUM [Concomitant]
     Active Substance: SODIUM CHONDROITIN SULFATE
     Route: 065
  4. DIACEREIN [Concomitant]
     Active Substance: DIACEREIN
     Route: 065
  5. ABIRATERONE ACETATE [Suspect]
     Active Substance: ABIRATERONE ACETATE
     Indication: PROSTATE CANCER METASTATIC
     Route: 048
     Dates: start: 20140304, end: 20140430
  6. PRETERAX [Concomitant]
     Active Substance: INDAPAMIDE\PERINDOPRIL
     Route: 065
  7. LEUPRORELIN [Concomitant]
     Active Substance: LEUPROLIDE ACETATE
     Indication: PROSTATE CANCER METASTATIC
     Route: 058
  8. OMEPRAZOLE. [Concomitant]
     Active Substance: OMEPRAZOLE
     Route: 065

REACTIONS (5)
  - Diarrhoea [Recovered/Resolved]
  - Arthralgia [Unknown]
  - Fall [Unknown]
  - Muscular weakness [Unknown]
  - Asthenia [Unknown]

NARRATIVE: CASE EVENT DATE: 20140423
